FAERS Safety Report 21324042 (Version 1)
Quarter: 2022Q3

REPORT INFORMATION
  Report Type: Spontaneous
  Country: PL (occurrence: PL)
  Receive Date: 20220912
  Receipt Date: 20220912
  Transmission Date: 20221027
  Serious: Yes (Other)
  Sender: FDA-Public Use
  Company Number: PL-TAKEDA-2022TUS062496

PATIENT

DRUGS (5)
  1. CONTROLOC [Suspect]
     Active Substance: PANTOPRAZOLE SODIUM
     Dosage: 80 MILLIGRAM
     Route: 065
  2. ESOMEPRAZOLE [Suspect]
     Active Substance: ESOMEPRAZOLE
     Dosage: UNK
     Route: 065
  3. DEXLANSOPRAZOLE [Suspect]
     Active Substance: DEXLANSOPRAZOLE
     Dosage: UNK
     Route: 065
  4. DEXILANT [Suspect]
     Active Substance: DEXLANSOPRAZOLE
     Indication: Gastritis
     Dosage: UNK
     Route: 065
  5. OMEPRAZOLE [Suspect]
     Active Substance: OMEPRAZOLE
     Dosage: UNK
     Route: 065

REACTIONS (11)
  - Oesophageal stenosis [Unknown]
  - Skin lesion [Unknown]
  - Throat irritation [Unknown]
  - Urethritis noninfective [Unknown]
  - Renal disorder [Unknown]
  - Sensitisation [Unknown]
  - Malaise [Unknown]
  - Hypersensitivity [Unknown]
  - Nausea [Unknown]
  - Product prescribing error [Unknown]
  - Overdose [Unknown]
